FAERS Safety Report 4964781-0 (Version None)
Quarter: 2006Q2

REPORT INFORMATION
  Report Type: 
  Country: None (occurrence: None)
  Receive Date: 20060403
  Receipt Date: 20060320
  Transmission Date: 20061013
  Serious: No
  Sender: FDA-Public Use
  Company Number: 2006-139967-NL

PATIENT
  Sex: Female

DRUGS (1)
  1. MARVELON [Suspect]
     Dosage: DF

REACTIONS (2)
  - NEOPLASM PROGRESSION [None]
  - NEUROFIBROMA [None]
